FAERS Safety Report 5225426-8 (Version None)
Quarter: 2007Q1

REPORT INFORMATION
  Report Type: 
  Country: None (occurrence: None)
  Receive Date: 20070131
  Receipt Date: 20070119
  Transmission Date: 20070707
  Serious: Yes (Disabling, Other)
  Sender: FDA-Public Use
  Company Number: NL-PFIZER INC-2006156125

PATIENT
  Sex: Male
  Weight: 73 kg

DRUGS (3)
  1. XALATAN [Suspect]
     Indication: GLAUCOMA
     Route: 047
  2. XALATAN [Suspect]
     Indication: INTRAOCULAR PRESSURE INCREASED
  3. TRUSOPT [Concomitant]
     Indication: GLAUCOMA
     Route: 047
     Dates: start: 20010227, end: 20061121

REACTIONS (2)
  - BLINDNESS UNILATERAL [None]
  - MACULAR DEGENERATION [None]
